FAERS Safety Report 4424448-4 (Version None)
Quarter: 2004Q3

REPORT INFORMATION
  Report Type: 
  Country: None (occurrence: None)
  Receive Date: 20040812
  Receipt Date: 20040804
  Transmission Date: 20050211
  Serious: Yes (Other)
  Sender: FDA-Public Use
  Company Number: US-BRISTOL-MYERS SQUIBB COMPANY-12660288

PATIENT

DRUGS (4)
  1. HYDROXYUREA [Suspect]
     Indication: NEOPLASM MALIGNANT
     Dosage: LEVEL 1: 500 MG; LEVEL 2:500 MG; LEVEL 3:1000 MG; LEVEL 4: 500 MG.
     Route: 048
  2. FLUOROURACIL [Suspect]
     Indication: NEOPLASM MALIGNANT
     Dosage: LEVEL 1: 600 MG/M^2 LEVEL 2:600 MG/M^2 LEVEL 3:800 MG/M^2 LEVEL 4: 600 MG/M^2.
     Route: 042
  3. BEVACIZUMAB [Suspect]
     Indication: NEOPLASM MALIGNANT
     Dosage: LEVEL 1: 2.5 MG/KG LEVEL 2:5.0 MG/KG LEVEL 3:5.0 MG/KG LEVEL 4: 10.0 MG/KG.
  4. RADIOTHERAPY [Concomitant]
     Indication: NEOPLASM MALIGNANT
     Dosage: ON DAYS 1 TO 5

REACTIONS (6)
  - DERMATITIS [None]
  - HEPATOTOXICITY [None]
  - MUCOSAL INFLAMMATION [None]
  - PALMAR-PLANTAR ERYTHRODYSAESTHESIA SYNDROME [None]
  - PNEUMONIA ASPIRATION [None]
  - SEPSIS [None]
